FAERS Safety Report 13362160 (Version 2)
Quarter: 2017Q2

REPORT INFORMATION
  Report Type: Spontaneous
  Country: US (occurrence: US)
  Receive Date: 20170323
  Receipt Date: 20170616
  Transmission Date: 20170830
  Serious: Yes (Other)
  Sender: FDA-Public Use
  Company Number: US-HORMOSAN-2017-01212

PATIENT
  Age: 53 Year
  Sex: Male
  Weight: 88.89 kg

DRUGS (4)
  1. OXCARBAZEPINE. [Concomitant]
     Active Substance: OXCARBAZEPINE
     Indication: SEIZURE
     Dosage: UNK UNK, BID
     Route: 048
     Dates: start: 200510
  2. DIAZEPAM. [Concomitant]
     Active Substance: DIAZEPAM
     Indication: SEIZURE
     Dosage: UNK
  3. LEVETIRACETAM TABLETS USP, 500 MG [Suspect]
     Active Substance: LEVETIRACETAM
     Indication: SEIZURE
     Dosage: 2000 MG
     Route: 048
     Dates: start: 201610
  4. LEVETIRACETAM TABLETS USP, 500 MG [Suspect]
     Active Substance: LEVETIRACETAM
     Dosage: 1500MG DAILY
     Route: 048

REACTIONS (4)
  - Drug ineffective [Unknown]
  - Seizure [Recovered/Resolved]
  - Rash [Recovered/Resolved]
  - Wrong technique in product usage process [Unknown]

NARRATIVE: CASE EVENT DATE: 20170308
